FAERS Safety Report 6969083-9 (Version None)
Quarter: 2010Q3

REPORT INFORMATION
  Report Type: 
  Country: None (occurrence: None)
  Receive Date: 20100903
  Receipt Date: 20100903
  Transmission Date: 20110219
  Serious: Yes (Other)
  Sender: FDA-Public Use
  Company Number: None

PATIENT
  Age: 48 Year
  Sex: Female
  Weight: 49.8957 kg

DRUGS (1)
  1. LEVAQUIN [Suspect]
     Indication: URINARY TRACT INFECTION
     Dosage: 1 PER DAY
     Dates: start: 20100817, end: 20100820

REACTIONS (9)
  - ARTHRALGIA [None]
  - BURNING SENSATION [None]
  - DEPRESSION [None]
  - FATIGUE [None]
  - JOINT STIFFNESS [None]
  - MUSCLE TWITCHING [None]
  - NERVOUSNESS [None]
  - NIGHTMARE [None]
  - PAIN IN EXTREMITY [None]
